FAERS Safety Report 8456993 (Version 2)
Quarter: 2012Q4

REPORT INFORMATION
  Report Type: 
  Country: US (occurrence: US)
  Receive Date: 20120313
  Receipt Date: 20121126
  Transmission Date: 20130627
  Serious: Yes (Disabling, Other)
  Sender: FDA-Public Use
  Company Number: PHEH2012US005604

PATIENT
  Age: 62 None
  Sex: Female

DRUGS (5)
  1. GILENYA [Suspect]
     Indication: MULTIPLE SCLEROSIS
     Dosage: 0.5 mg,
     Route: 048
     Dates: start: 20110901, end: 20111110
  2. VITAMIN D [Concomitant]
  3. NAPROXEN [Concomitant]
  4. AMANTADINE [Concomitant]
  5. AMBIEN [Concomitant]

REACTIONS (11)
  - Blindness [Unknown]
  - Visual impairment [Unknown]
  - Corneal dystrophy [Recovering/Resolving]
  - Corneal oedema [Recovered/Resolved]
  - Corneal epithelium defect [Recovered/Resolved]
  - Visual acuity reduced [Recovered/Resolved]
  - Vision blurred [Unknown]
  - Foreign body sensation in eyes [Unknown]
  - Eye pain [Unknown]
  - Keratopathy [Recovered/Resolved]
  - Lacrimation increased [Unknown]
